FAERS Safety Report 20445485 (Version 1)
Quarter: 2022Q1

REPORT INFORMATION
  Report Type: Spontaneous
  Country: US (occurrence: None)
  Receive Date: 20220208
  Receipt Date: 20220208
  Transmission Date: 20220424
  Serious: Yes (Death)
  Sender: FDA-Public Use
  Company Number: None

PATIENT
  Age: 75 Year
  Sex: Female

DRUGS (1)
  1. KISQALI FEMARA CO-PACK [Suspect]
     Active Substance: LETROZOLE\RIBOCICLIB
     Dosage: OTHER QUANTITY : 1800/75 DF;?FREQUENCY : DAILY;?
     Route: 048
     Dates: start: 202110, end: 202201

REACTIONS (1)
  - Death [None]

NARRATIVE: CASE EVENT DATE: 20220130
